FAERS Safety Report 4356837-0 (Version None)
Quarter: 2004Q2

REPORT INFORMATION
  Report Type: 
  Country: None (occurrence: None)
  Receive Date: 20040507
  Receipt Date: 20040423
  Transmission Date: 20050107
  Serious: Yes (Other)
  Sender: FDA-Public Use
  Company Number: 2003-06231

PATIENT

DRUGS (3)
  1. VIREAD [Suspect]
     Indication: HIV INFECTION
  2. EFAVIRENZ (EFAVIRENZ) [Concomitant]
  3. LOPINAVIR (LOPINAVIR) [Concomitant]

REACTIONS (1)
  - HYPERLACTACIDAEMIA [None]
